FAERS Safety Report 5321391-3 (Version None)
Quarter: 2007Q2

REPORT INFORMATION
  Report Type: 
  Country: None (occurrence: None)
  Receive Date: 20070510
  Receipt Date: 20070424
  Transmission Date: 20071010
  Serious: No
  Sender: FDA-Public Use
  Company Number: GB-AMGEN-US221063

PATIENT
  Sex: Male

DRUGS (5)
  1. ENBREL [Suspect]
     Indication: RHEUMATOID ARTHRITIS
     Route: 058
     Dates: start: 20050928
  2. METHOTREXATE [Suspect]
     Indication: RHEUMATOID ARTHRITIS
     Route: 048
     Dates: start: 19990218
  3. PROZAC [Concomitant]
     Dosage: UNKNONW
  4. CO-DYDRAMOL [Concomitant]
     Dosage: UNKNONW
  5. ETODOLAC [Concomitant]
     Indication: RHEUMATOID ARTHRITIS
     Route: 048
     Dates: start: 20050522

REACTIONS (3)
  - AURAL POLYP [None]
  - EAR INFECTION [None]
  - PSEUDOMONAS INFECTION [None]
